FAERS Safety Report 4521768-X (Version None)
Quarter: 2004Q4

REPORT INFORMATION
  Report Type: 
  Country: None (occurrence: None)
  Receive Date: 20041206
  Receipt Date: 20041118
  Transmission Date: 20050328
  Serious: Yes (Death)
  Sender: FDA-Public Use
  Company Number: L04-USA-07403-40

PATIENT
  Age: 84 Year

DRUGS (1)
  1. THEOPHYLLINE [Suspect]

REACTIONS (1)
  - ACCIDENTAL OVERDOSE [None]
